FAERS Safety Report 25199859 (Version 1)
Quarter: 2025Q2

REPORT INFORMATION
  Report Type: Other
  Country: US (occurrence: US)
  Receive Date: 20250415
  Receipt Date: 20250415
  Transmission Date: 20250717
  Serious: Yes (Hospitalization, Other)
  Sender: B BRAUN
  Company Number: US-B.Braun Medical Inc.-2174964

PATIENT
  Age: 57 Year
  Sex: Female

DRUGS (2)
  1. CEFAZOLIN SODIUM [Suspect]
     Active Substance: CEFAZOLIN SODIUM
     Indication: Postoperative wound infection
  2. UNSPECIFIED INGREDIENT [Concomitant]
     Active Substance: UNSPECIFIED INGREDIENT

REACTIONS (1)
  - Hypersensitivity pneumonitis [Recovering/Resolving]
